FAERS Safety Report 10537683 (Version 1)
Quarter: 2014Q4

REPORT INFORMATION
  Report Type: Report from Study
  Country: GT (occurrence: GT)
  Receive Date: 20141023
  Receipt Date: 20141023
  Transmission Date: 20150529
  Serious: Yes (Other)
  Sender: FDA-Public Use
  Company Number: PHHY2014GT138212

PATIENT
  Sex: Female

DRUGS (1)
  1. GLIVEC [Suspect]
     Active Substance: IMATINIB MESYLATE
     Indication: CHRONIC MYELOID LEUKAEMIA
     Dosage: 400 MG, UNK
     Route: 065

REACTIONS (8)
  - Malaise [Unknown]
  - Myalgia [Unknown]
  - General physical health deterioration [Unknown]
  - Dengue fever [Unknown]
  - Pyrexia [Unknown]
  - Bone pain [Unknown]
  - Rash [Unknown]
  - Pain [Unknown]
